FAERS Safety Report 5892652-4 (Version None)
Quarter: 2008Q3

REPORT INFORMATION
  Report Type: 
  Country: None (occurrence: None)
  Receive Date: 20080923
  Receipt Date: 20080915
  Transmission Date: 20090109
  Serious: Yes (Hospitalization)
  Sender: FDA-Public Use
  Company Number: PHHY2008MX21600

PATIENT
  Age: 55 Year
  Sex: Male

DRUGS (1)
  1. STALEVO 100 [Suspect]
     Indication: PARKINSON'S DISEASE
     Dosage: 3TABS (200/150/37.5MG) DAILY,
     Dates: start: 20060101

REACTIONS (2)
  - DETOXIFICATION [None]
  - DRUG INEFFECTIVE [None]
